FAERS Safety Report 4269570-0 (Version None)
Quarter: 2004Q1

REPORT INFORMATION
  Report Type: 
  Country: None (occurrence: None)
  Receive Date: 20040112
  Receipt Date: 20040105
  Transmission Date: 20041129
  Serious: Yes (Hospitalization, Disabling)
  Sender: FDA-Public Use
  Company Number: 2004CG00020

PATIENT
  Age: 63 Year
  Sex: Male
  Weight: 89 kg

DRUGS (5)
  1. ZOLADEX [Suspect]
     Indication: PROSTATE CANCER
     Dosage: 10.8 MG Q3MO SQ
     Dates: start: 20030801
  2. PREVISCAN [Concomitant]
  3. SOTALEX [Concomitant]
  4. COZAAR [Concomitant]
  5. ELISOR [Concomitant]

REACTIONS (5)
  - ARTHRALGIA [None]
  - ERYTHEMA [None]
  - OEDEMA [None]
  - PARANEOPLASTIC SYNDROME [None]
  - POLYARTHRITIS [None]
